FAERS Safety Report 4764265-9 (Version None)
Quarter: 2005Q3

REPORT INFORMATION
  Report Type: 
  Country: None (occurrence: None)
  Receive Date: 20050906
  Receipt Date: 20050823
  Transmission Date: 20060218
  Serious: Yes (Other)
  Sender: FDA-Public Use
  Company Number: 2005119674

PATIENT
  Age: 48 Year
  Sex: Female

DRUGS (3)
  1. RELPAX [Suspect]
     Indication: MIGRAINE
     Dosage: 40 MG
  2. XALATAN [Concomitant]
  3. TOPAMAX [Concomitant]

REACTIONS (1)
  - ANAPHYLACTIC REACTION [None]
